FAERS Safety Report 16842901 (Version 1)
Quarter: 2019Q3

REPORT INFORMATION
  Report Type: Report from Study
  Country: None (occurrence: US)
  Receive Date: 20190924
  Receipt Date: 20190924
  Transmission Date: 20191005
  Serious: Yes (Other)
  Sender: FDA-Public Use
  Company Number: US-ABBVIE-19K-163-2934065-00

PATIENT
  Age: 68 Year
  Sex: Male
  Weight: 73.55 kg

DRUGS (3)
  1. VENETOCLAX. [Suspect]
     Active Substance: VENETOCLAX
     Indication: WALDENSTROM^S MACROGLOBULINAEMIA
     Route: 048
     Dates: start: 20151202
  2. VENETOCLAX. [Suspect]
     Active Substance: VENETOCLAX
     Route: 048
     Dates: start: 20181128
  3. VELCADE [Suspect]
     Active Substance: BORTEZOMIB
     Indication: WALDENSTROM^S MACROGLOBULINAEMIA
     Route: 065

REACTIONS (3)
  - Off label use [Unknown]
  - Atrial fibrillation [Not Recovered/Not Resolved]
  - Diarrhoea [Recovered/Resolved]

NARRATIVE: CASE EVENT DATE: 201903
